FAERS Safety Report 8788654 (Version 1)
Quarter: 2012Q4

REPORT INFORMATION
  Report Type: 
  Country: US (occurrence: US)
  Receive Date: 20120917
  Receipt Date: 20120917
  Transmission Date: 20130627
  Serious: Yes (Other)
  Sender: FDA-Public Use
  Company Number: US-TEVA-358962USA

PATIENT
  Age: 32 Year
  Sex: Female

DRUGS (1)
  1. COPAXONE [Suspect]
     Dates: start: 20120617

REACTIONS (4)
  - Pruritus generalised [Unknown]
  - Immediate post-injection reaction [Unknown]
  - Dyspnoea [Unknown]
  - Urticaria [Unknown]
